FAERS Safety Report 8593840 (Version 3)
Quarter: 2014Q1

REPORT INFORMATION
  Report Type: Spontaneous
  Country: US (occurrence: US)
  Receive Date: 20120604
  Receipt Date: 20140108
  Transmission Date: 20141002
  Serious: Yes (Hospitalization, Disabling)
  Sender: FDA-Public Use
  Company Number: US-ASTRAZENECA-2012SE34791

PATIENT
  Age: 50 Year
  Sex: Female
  Weight: 80.7 kg

DRUGS (19)
  1. NEXIUM [Suspect]
     Indication: GASTROOESOPHAGEAL REFLUX DISEASE
     Route: 048
  2. NEXIUM [Suspect]
     Indication: GASTROOESOPHAGEAL REFLUX DISEASE
     Route: 048
     Dates: start: 201102
  3. NEXIUM [Suspect]
     Indication: GASTROOESOPHAGEAL REFLUX DISEASE
     Dosage: 1 SOMETIME 2
     Route: 048
  4. PEPCID [Concomitant]
  5. NORVAS [Concomitant]
  6. MEPTEOL [Concomitant]
  7. WARFATIN [Concomitant]
  8. TYLENOL [Concomitant]
     Dosage: 3 WHEN NEEDED
  9. LORTAB [Concomitant]
  10. FLEXERIL [Concomitant]
  11. PROPRANOLOL [Concomitant]
  12. ALDACTONE [Concomitant]
  13. LEXAPRO [Concomitant]
     Dates: start: 20110309
  14. NEURONTIN [Concomitant]
     Dates: start: 20110309
  15. LEVEMIR [Concomitant]
     Route: 058
     Dates: start: 20110309
  16. RYTHMOL SR [Concomitant]
     Route: 048
     Dates: start: 20110309
  17. LOPRESSOR [Concomitant]
     Route: 048
     Dates: start: 20110309
  18. VALSARTAN-HYDROCHLOROTHIAZIDE [Concomitant]
     Dosage: 320-25 MG
     Route: 048
     Dates: start: 20110309
  19. LIPITOR [Concomitant]

REACTIONS (11)
  - Cerebrovascular accident [Unknown]
  - Foot fracture [Unknown]
  - Pneumonia [Unknown]
  - Influenza [Unknown]
  - Patella fracture [Unknown]
  - Fall [Unknown]
  - Tendon rupture [Unknown]
  - Osteoporosis [Unknown]
  - Chest pain [Unknown]
  - Angina pectoris [Unknown]
  - Muscular weakness [Unknown]
